FAERS Safety Report 25529099 (Version 2)
Quarter: 2025Q3

REPORT INFORMATION
  Report Type: Spontaneous
  Country: US (occurrence: US)
  Receive Date: 20250708
  Receipt Date: 20250711
  Transmission Date: 20251020
  Serious: Yes (Life-Threatening, Hospitalization)
  Sender: AMGEN
  Company Number: US-AMGEN-USASP2025129587

PATIENT
  Sex: Female

DRUGS (16)
  1. EPOGEN [Suspect]
     Active Substance: ERYTHROPOIETIN
     Indication: Anaemia
     Dosage: UNK, QD
     Route: 040
     Dates: start: 20250603, end: 20250615
  2. RETACRIT [Suspect]
     Active Substance: EPOETIN ALFA-EPBX
     Indication: Anaemia
     Route: 040
     Dates: start: 20250603, end: 20250603
  3. RETACRIT [Suspect]
     Active Substance: EPOETIN ALFA-EPBX
     Route: 040
     Dates: start: 20250610, end: 20250610
  4. RETACRIT [Suspect]
     Active Substance: EPOETIN ALFA-EPBX
     Route: 040
     Dates: start: 20250611, end: 20250614
  5. RETACRIT [Suspect]
     Active Substance: EPOETIN ALFA-EPBX
     Route: 040
     Dates: start: 20250614, end: 20250615
  6. TALAZOPARIB [Suspect]
     Active Substance: TALAZOPARIB
     Indication: Breast cancer
     Dosage: 1 MILLIGRAM, QD
     Route: 048
     Dates: start: 20250411, end: 20250602
  7. SENOKOT [Concomitant]
     Active Substance: SENNOSIDES
     Indication: Diarrhoea
     Route: 048
     Dates: start: 20250611, end: 20250618
  8. MS CONTIN [Concomitant]
     Active Substance: MORPHINE SULFATE
     Indication: Pain
     Route: 048
     Dates: start: 20250611, end: 20250611
  9. CLARITIN [Concomitant]
     Active Substance: LORATADINE
     Indication: Antiallergic therapy
     Route: 048
     Dates: start: 20250611, end: 20250611
  10. LIDOCAINE [Concomitant]
     Active Substance: LIDOCAINE
     Indication: Pain
     Route: 061
     Dates: start: 20250611, end: 20250611
  11. DILAUDID [Concomitant]
     Active Substance: HYDROMORPHONE HYDROCHLORIDE
     Indication: Pain
     Route: 048
     Dates: start: 20250611, end: 20250611
  12. DILAUDID [Concomitant]
     Active Substance: HYDROMORPHONE HYDROCHLORIDE
     Indication: Pain
     Route: 040
     Dates: start: 20250611, end: 20250611
  13. ZYRTEC [Concomitant]
     Active Substance: CETIRIZINE HYDROCHLORIDE
     Indication: Premedication
     Route: 048
     Dates: start: 20250610, end: 20250610
  14. PEPCID [Concomitant]
     Active Substance: FAMOTIDINE
     Indication: Premedication
     Route: 048
     Dates: start: 20250610, end: 20250610
  15. MIRALAX [Concomitant]
     Active Substance: POLYETHYLENE GLYCOL 3350
     Indication: Diarrhoea
     Route: 048
     Dates: start: 20250612, end: 20250618
  16. NEURONTIN [Concomitant]
     Active Substance: GABAPENTIN
     Indication: Pain
     Route: 048
     Dates: start: 20250611, end: 20250618

REACTIONS (1)
  - Anaemia [Recovered/Resolved]

NARRATIVE: CASE EVENT DATE: 20250411
